FAERS Safety Report 6128201-5 (Version None)
Quarter: 2009Q1

REPORT INFORMATION
  Report Type: 
  Country: None (occurrence: None)
  Receive Date: 20090323
  Receipt Date: 20090312
  Transmission Date: 20090719
  Serious: Yes (Hospitalization, Disabling)
  Sender: FDA-Public Use
  Company Number: FR-ASTRAZENECA-2008CG00517

PATIENT
  Age: 15 Year
  Sex: Female

DRUGS (3)
  1. MOPRAL [Suspect]
     Indication: HIATUS HERNIA
     Route: 048
     Dates: start: 20040101, end: 20080409
  2. MOPRAL [Suspect]
     Route: 048
  3. REVAXIS [Suspect]
     Dates: start: 20071105, end: 20071105

REACTIONS (2)
  - EXOPHTHALMOS [None]
  - MENINGITIS [None]
